FAERS Safety Report 19677466 (Version 1)
Quarter: 2021Q3

REPORT INFORMATION
  Report Type: Spontaneous
  Country: US (occurrence: US)
  Receive Date: 20210810
  Receipt Date: 20210810
  Transmission Date: 20211014
  Serious: Yes (Hospitalization, Other)
  Sender: FDA-Public Use
  Company Number: US-BLUEPRINT MEDICINES CORPORATION-SP-US-2021-001196

PATIENT
  Sex: Male

DRUGS (3)
  1. AYVAKIT [Suspect]
     Active Substance: AVAPRITINIB
     Dosage: 100MG ONCE DAILY FOR WEEK ONE, 200MG ONCE DAILY FOR WEEK 2, 300MG ONCE DAILY FOR WEEK 3
     Route: 048
  2. AYVAKIT [Suspect]
     Active Substance: AVAPRITINIB
     Indication: GASTROINTESTINAL STROMAL TUMOUR
     Dosage: 100MG ONCE DAILY FOR WEEK ONE, 200MG ONCE DAILY FOR WEEK 2, 300MG ONCE DAILY FOR WEEK 3
     Route: 048
     Dates: start: 20210701
  3. AYVAKIT [Suspect]
     Active Substance: AVAPRITINIB
     Dosage: 100MG ONCE DAILY FOR WEEK ONE, 200MG ONCE DAILY FOR WEEK 2, 300MG ONCE DAILY FOR WEEK 3
     Route: 048

REACTIONS (2)
  - Off label use [None]
  - Haemorrhage [Unknown]
